FAERS Safety Report 6128557-3 (Version None)
Quarter: 2009Q1

REPORT INFORMATION
  Report Type: 
  Country: None (occurrence: None)
  Receive Date: 20090323
  Receipt Date: 20090311
  Transmission Date: 20090719
  Serious: Yes (Other)
  Sender: FDA-Public Use
  Company Number: US-ELI_LILLY_AND_COMPANY-US200903003124

PATIENT
  Sex: Male

DRUGS (3)
  1. ZYPREXA [Suspect]
     Dosage: 5 MG, EACH MORNING
     Dates: start: 20010213, end: 20090301
  2. ZYPREXA [Suspect]
     Dosage: 10 MG, EACH EVENING
     Dates: start: 20010213, end: 20090301
  3. DEPAKOTE [Concomitant]
     Dosage: 1000 MG, DAILY (1/D)
     Dates: start: 20010702

REACTIONS (2)
  - GAIT DISTURBANCE [None]
  - HYDROCEPHALUS [None]
